FAERS Safety Report 17328077 (Version 2)
Quarter: 2020Q1

REPORT INFORMATION
  Report Type: Spontaneous
  Country: JP (occurrence: JP)
  Receive Date: 20200127
  Receipt Date: 20200203
  Transmission Date: 20200409
  Serious: Yes (Other)
  Sender: FDA-Public Use
  Company Number: JP-FERRINGPH-2020FE00367

PATIENT
  Age: 50 Year
  Sex: Male

DRUGS (2)
  1. BICALUTAMIDE. [Concomitant]
     Active Substance: BICALUTAMIDE
  2. GONAX [Suspect]
     Active Substance: DEGARELIX
     Indication: PROSTATE CANCER
     Route: 058

REACTIONS (8)
  - Injection site pain [Unknown]
  - Loss of libido [Unknown]
  - Arthralgia [Recovering/Resolving]
  - Mesenteric vascular insufficiency [Unknown]
  - Pyrexia [Unknown]
  - Dysuria [Unknown]
  - Muscular weakness [Unknown]
  - Hypertension [Unknown]
